FAERS Safety Report 9022107 (Version 1)
Quarter: 2013Q1

REPORT INFORMATION
  Report Type: Spontaneous
  Country: US (occurrence: US)
  Receive Date: 20130118
  Receipt Date: 20130118
  Transmission Date: 20140127
  Serious: No
  Sender: FDA-Public Use
  Company Number: US-SANOFI-AVENTIS-2012SA060523

PATIENT
  Sex: Female

DRUGS (5)
  1. LASIX [Suspect]
     Route: 065
  2. RANITIDINE [Suspect]
     Route: 065
  3. LOPID [Suspect]
     Route: 065
  4. RAMIPRIL [Suspect]
     Route: 065
  5. VITAMIN D [Suspect]
     Route: 065

REACTIONS (4)
  - Blood glucose increased [Unknown]
  - Feeling abnormal [Unknown]
  - Fatigue [Unknown]
  - Hyperhidrosis [Unknown]
